FAERS Safety Report 7597459-8 (Version None)
Quarter: 2011Q3

REPORT INFORMATION
  Report Type: 
  Country: None (occurrence: None)
  Receive Date: 20110708
  Receipt Date: 20110628
  Transmission Date: 20111222
  Serious: Yes (Hospitalization, Other)
  Sender: FDA-Public Use
  Company Number: PHHO2010JP09115

PATIENT
  Sex: Male

DRUGS (15)
  1. VOGLIBOSE [Concomitant]
  2. WARFARIN SODIUM [Concomitant]
  3. ENALAPRIL MALEATE [Suspect]
     Indication: CARDIAC FAILURE
     Dosage: CODE NOT BROKEN
     Route: 048
     Dates: start: 20100208, end: 20100614
  4. SPIRONOLACTONE [Concomitant]
  5. CANDESARTAN CILEXETIL [Concomitant]
     Indication: CARDIAC FAILURE
     Dosage: 12 MG, QD
     Route: 048
     Dates: start: 20060825
  6. EQUA [Suspect]
     Dosage: 80 MG, UNK
     Dates: start: 20110530
  7. ALOSITOL [Concomitant]
  8. ALISKIREN [Suspect]
     Indication: CARDIAC FAILURE
     Dosage: UNK
     Route: 048
     Dates: start: 20100118
  9. CARVEDILOL [Concomitant]
     Indication: CARDIAC FAILURE
     Dosage: 2.5 MG, TID
     Route: 048
     Dates: start: 20091102
  10. EPADEL [Concomitant]
  11. BLINDED NO TREATMENT RECEIVED [Suspect]
     Indication: CARDIAC FAILURE
     Dosage: CODE NOT BROKEN
     Route: 048
     Dates: start: 20100208, end: 20100614
  12. BLINDED ALISKIREN [Suspect]
     Indication: CARDIAC FAILURE
     Dosage: CODE NOT BROKEN
     Route: 048
     Dates: start: 20100208, end: 20100614
  13. ENALAPRIL MALEATE [Suspect]
     Indication: CARDIAC FAILURE
     Dosage: UNK
     Route: 048
     Dates: start: 20091201
  14. ENALAPRIL MALEATE [Concomitant]
  15. LASIX [Concomitant]
     Indication: CARDIAC FAILURE CHRONIC
     Dosage: 80 MG, BID
     Route: 048
     Dates: start: 20090903

REACTIONS (6)
  - MYOCARDIAL ISCHAEMIA [None]
  - CARDIAC FAILURE [None]
  - DYSPNOEA [None]
  - RENAL FAILURE [None]
  - HEART RATE DECREASED [None]
  - OEDEMA [None]
